FAERS Safety Report 11474620 (Version 2)
Quarter: 2018Q3

REPORT INFORMATION
  Report Type: Spontaneous
  Country: US (occurrence: US)
  Receive Date: 20150908
  Receipt Date: 20180724
  Transmission Date: 20181010
  Serious: No
  Sender: FDA-Public Use
  Company Number: US-JAZZ-2014-US-007568

PATIENT
  Age: 44 Year
  Sex: Male
  Weight: 77.98 kg

DRUGS (12)
  1. XYREM [Suspect]
     Active Substance: SODIUM OXYBATE
     Indication: NARCOLEPSY
     Dosage: 2.25 G, QD
     Route: 048
     Dates: start: 20140613, end: 20140613
  2. MEMANTINE. [Concomitant]
     Active Substance: MEMANTINE
     Indication: FIBROMYALGIA
     Dosage: UNK
  3. KLONOPIN [Concomitant]
     Active Substance: CLONAZEPAM
     Indication: GENERALISED ANXIETY DISORDER
     Dosage: 0.25 MG, PRN
     Route: 048
  4. NUVIGIL [Concomitant]
     Active Substance: ARMODAFINIL
     Indication: SOMNOLENCE
  5. MEMANTINE. [Concomitant]
     Active Substance: MEMANTINE
     Indication: ATTENTION DEFICIT/HYPERACTIVITY DISORDER
  6. XYREM [Suspect]
     Active Substance: SODIUM OXYBATE
     Dosage: 1.5 G, BID
     Route: 048
     Dates: start: 2014
  7. NUVIGIL [Concomitant]
     Active Substance: ARMODAFINIL
     Indication: NARCOLEPSY
     Route: 048
  8. SAVELLA [Concomitant]
     Active Substance: MILNACIPRAN HYDROCHLORIDE
     Indication: FIBROMYALGIA
     Dosage: UNK
  9. XYREM [Suspect]
     Active Substance: SODIUM OXYBATE
     Indication: SOMNOLENCE
     Dosage: 2.25 G, BID
     Route: 048
     Dates: start: 2014, end: 2014
  10. XYREM [Suspect]
     Active Substance: SODIUM OXYBATE
     Dosage: 2 G, BID
     Route: 048
     Dates: start: 2014, end: 2014
  11. HYDROXYZINE HYDROCHLORIDE. [Concomitant]
     Active Substance: HYDROXYZINE HYDROCHLORIDE
     Indication: GENERALISED ANXIETY DISORDER
     Route: 048
  12. MEMANTINE. [Concomitant]
     Active Substance: MEMANTINE
     Indication: CHRONIC FATIGUE SYNDROME

REACTIONS (11)
  - Condition aggravated [Unknown]
  - Vertigo [Recovered/Resolved]
  - Somnolence [Unknown]
  - Depression [Recovering/Resolving]
  - Skin burning sensation [Unknown]
  - Dizziness [Recovered/Resolved]
  - Skin tightness [Unknown]
  - Anxiety disorder [Recovering/Resolving]
  - Dyspnoea [Unknown]
  - Hypervigilance [Unknown]
  - Feeling drunk [Recovered/Resolved]

NARRATIVE: CASE EVENT DATE: 2014
